FAERS Safety Report 5266961-6 (Version None)
Quarter: 2007Q1

REPORT INFORMATION
  Report Type: 
  Country: None (occurrence: None)
  Receive Date: 20070316
  Receipt Date: 20011001
  Transmission Date: 20070707
  Serious: Yes (Other)
  Sender: FDA-Public Use
  Company Number: US-BRISTOL-MYERS SQUIBB COMPANY-11320645

PATIENT
  Age: 63 Year
  Sex: Male

DRUGS (5)
  1. SUSTIVA [Suspect]
     Indication: HIV INFECTION
     Dosage: THERAPY INTERRUPTED IN MAR-1998, AND RESTARTED ON AN UNSPECIFIED DATE.
     Route: 048
     Dates: start: 19980312, end: 19980401
  2. DIDANOSINE [Concomitant]
  3. SAQUINAVIR [Concomitant]
  4. ADEFOVIR DIPIVOXIL KIT [Concomitant]
  5. HYDROXYUREA [Concomitant]

REACTIONS (4)
  - CONFUSIONAL STATE [None]
  - HEADACHE [None]
  - NAUSEA [None]
  - OEDEMA PERIPHERAL [None]
